FAERS Safety Report 25682465 (Version 1)
Quarter: 2025Q3

REPORT INFORMATION
  Report Type: Spontaneous
  Country: TR (occurrence: TR)
  Receive Date: 20250814
  Receipt Date: 20250814
  Transmission Date: 20251020
  Serious: Yes (Hospitalization)
  Sender: AMGEN
  Company Number: TR-AMGEN-TURSP2025156179

PATIENT
  Age: 30 Year
  Sex: Female

DRUGS (2)
  1. DARBEPOETIN ALFA [Suspect]
     Active Substance: DARBEPOETIN ALFA
     Indication: Acute kidney injury
     Route: 065
  2. CALCIUM ACETATE [Concomitant]
     Active Substance: CALCIUM ACETATE
     Indication: Acute kidney injury

REACTIONS (2)
  - Cat scratch disease [Recovered/Resolved]
  - Off label use [Unknown]
